FAERS Safety Report 11759658 (Version 1)
Quarter: 2015Q4

REPORT INFORMATION
  Report Type: Spontaneous
  Country: US (occurrence: US)
  Receive Date: 20151120
  Receipt Date: 20151120
  Transmission Date: 20160304
  Serious: No
  Sender: FDA-Public Use
  Company Number: US-ELI_LILLY_AND_COMPANY-US201210002564

PATIENT
  Age: 67 Year
  Sex: Male

DRUGS (2)
  1. FORTEO [Suspect]
     Active Substance: TERIPARATIDE
     Indication: OSTEOPOROSIS
     Dosage: 1 DF, QD
  2. FORTEO [Suspect]
     Active Substance: TERIPARATIDE
     Dosage: 1 DF, QD
     Dates: start: 20121005

REACTIONS (2)
  - Overdose [Unknown]
  - Anxiety [Unknown]

NARRATIVE: CASE EVENT DATE: 20121005
